FAERS Safety Report 5590579-9 (Version None)
Quarter: 2008Q1

REPORT INFORMATION
  Report Type: 
  Country: None (occurrence: None)
  Receive Date: 20080114
  Receipt Date: 20080104
  Transmission Date: 20080703
  Serious: Yes (Hospitalization, Other)
  Sender: FDA-Public Use
  Company Number: US-ABBOTT-08P-163-0432429-00

PATIENT
  Sex: Male
  Weight: 29.964 kg

DRUGS (1)
  1. HUMIRA [Suspect]
     Indication: JUVENILE ARTHRITIS
     Route: 058
     Dates: start: 20060401, end: 20071201

REACTIONS (2)
  - LUNG NEOPLASM [None]
  - TUBERCULOSIS [None]
